FAERS Safety Report 6326073-7 (Version None)
Quarter: 2009Q3

REPORT INFORMATION
  Report Type: 
  Country: None (occurrence: None)
  Receive Date: 20090820
  Receipt Date: 20090811
  Transmission Date: 20100115
  Serious: Yes (Life-Threatening, Hospitalization)
  Sender: FDA-Public Use
  Company Number: 2009-190689-NL

PATIENT
  Age: 1 Day
  Sex: Male
  Weight: 2.46 kg

DRUGS (2)
  1. REMERON [Suspect]
     Indication: ACCIDENTAL EXPOSURE
     Dosage: TRPL
     Route: 064
  2. VENLAFAXINE [Suspect]
     Indication: ACCIDENTAL EXPOSURE
     Dosage: TRPL
     Route: 064

REACTIONS (5)
  - CAESAREAN SECTION [None]
  - DRUG EXPOSURE DURING PREGNANCY [None]
  - DRUG LEVEL ABOVE THERAPEUTIC [None]
  - INCORRECT DOSE ADMINISTERED [None]
  - SUICIDE ATTEMPT [None]
